FAERS Safety Report 5647520-X (Version None)
Quarter: 2008Q1

REPORT INFORMATION
  Report Type: 
  Country: None (occurrence: None)
  Receive Date: 20080303
  Receipt Date: 20080219
  Transmission Date: 20080703
  Serious: Yes (Hospitalization, Other)
  Sender: FDA-Public Use
  Company Number: US-ELI_LILLY_AND_COMPANY-US200802004643

PATIENT
  Sex: Male

DRUGS (5)
  1. STRATTERA [Suspect]
     Dosage: 40 MG, UNK
     Dates: start: 20070901
  2. PAXIL [Concomitant]
  3. RISPERDAL [Concomitant]
  4. LORTAB [Concomitant]
  5. ALCOHOL [Concomitant]

REACTIONS (1)
  - PANCREATITIS RELAPSING [None]
